FAERS Safety Report 6561554-2 (Version None)
Quarter: 2010Q1

REPORT INFORMATION
  Report Type: 
  Country: None (occurrence: None)
  Receive Date: 20100130
  Receipt Date: 20091021
  Transmission Date: 20100710
  Serious: Yes (Other)
  Sender: FDA-Public Use
  Company Number: US-ABBOTT-09P-163-0603949-00

PATIENT
  Sex: Female

DRUGS (2)
  1. HUMIRA [Suspect]
     Indication: UVEITIS
     Dosage: STOPPED 2 WEEKS AGO
     Dates: start: 20080401, end: 20081201
  2. ENBREL [Suspect]
     Indication: DRUG USE FOR UNKNOWN INDICATION
     Dates: start: 20081201, end: 20091001

REACTIONS (2)
  - DRUG INEFFECTIVE [None]
  - RECTAL CANCER [None]
